FAERS Safety Report 22331906 (Version 20)
Quarter: 2023Q4

REPORT INFORMATION
  Report Type: Spontaneous
  Country: CA (occurrence: CA)
  Receive Date: 20230517
  Receipt Date: 20231121
  Transmission Date: 20240110
  Serious: Yes (Death, Hospitalization, Other)
  Sender: FDA-Public Use
  Company Number: CA-PFIZER INC-PV202300081399

PATIENT
  Age: 47 Year
  Sex: Male
  Weight: 68 kg

DRUGS (20)
  1. ZIRABEV [Suspect]
     Active Substance: BEVACIZUMAB-BVZR
     Indication: Glioblastoma
     Dosage: 10 MG/KG (680MG), EVERY 2 WEEKS
     Route: 042
     Dates: start: 20230511
  2. ZIRABEV [Suspect]
     Active Substance: BEVACIZUMAB-BVZR
     Dosage: 680 MG
     Route: 042
     Dates: start: 20230511
  3. ZIRABEV [Suspect]
     Active Substance: BEVACIZUMAB-BVZR
     Dosage: 680 MG
     Route: 042
     Dates: start: 20230525
  4. ZIRABEV [Suspect]
     Active Substance: BEVACIZUMAB-BVZR
     Dosage: 680 MG
     Route: 042
     Dates: start: 20230525
  5. ZIRABEV [Suspect]
     Active Substance: BEVACIZUMAB-BVZR
     Dosage: 680 MG
     Route: 042
     Dates: start: 20230609
  6. ZIRABEV [Suspect]
     Active Substance: BEVACIZUMAB-BVZR
     Dosage: 680 MG
     Route: 042
     Dates: start: 20230628
  7. ZIRABEV [Suspect]
     Active Substance: BEVACIZUMAB-BVZR
     Dosage: 680 MG
     Route: 042
     Dates: start: 20230712
  8. ZIRABEV [Suspect]
     Active Substance: BEVACIZUMAB-BVZR
     Dosage: 680 MG
     Route: 042
     Dates: start: 20230712
  9. ZIRABEV [Suspect]
     Active Substance: BEVACIZUMAB-BVZR
     Dosage: 680 MG
     Route: 042
     Dates: start: 20230726
  10. ZIRABEV [Suspect]
     Active Substance: BEVACIZUMAB-BVZR
     Dosage: 680 MG
     Route: 042
     Dates: start: 20230808
  11. ZIRABEV [Suspect]
     Active Substance: BEVACIZUMAB-BVZR
     Dosage: 680 MG
     Route: 042
     Dates: start: 20230808
  12. ZIRABEV [Suspect]
     Active Substance: BEVACIZUMAB-BVZR
     Dosage: 680 MG
     Route: 042
     Dates: start: 20230822
  13. ZIRABEV [Suspect]
     Active Substance: BEVACIZUMAB-BVZR
     Dosage: 680 MG
     Route: 042
     Dates: start: 20230822
  14. ZIRABEV [Suspect]
     Active Substance: BEVACIZUMAB-BVZR
     Dosage: 680 MG
     Route: 042
     Dates: start: 20230907
  15. ZIRABEV [Suspect]
     Active Substance: BEVACIZUMAB-BVZR
     Dosage: 680 MG
     Route: 042
     Dates: start: 20230918
  16. ZIRABEV [Suspect]
     Active Substance: BEVACIZUMAB-BVZR
     Dosage: 680 MG
     Route: 042
     Dates: start: 20230918
  17. ZIRABEV [Suspect]
     Active Substance: BEVACIZUMAB-BVZR
     Dosage: 680 MG
     Route: 042
     Dates: start: 20231002
  18. ZIRABEV [Suspect]
     Active Substance: BEVACIZUMAB-BVZR
     Dosage: 680 MG EVERY 2 WEEKS
     Route: 042
     Dates: start: 20231016
  19. ETOPOSIDE [Concomitant]
     Active Substance: ETOPOSIDE
     Indication: Glioblastoma
     Dosage: UNK
  20. ETOPOSIDE [Concomitant]
     Active Substance: ETOPOSIDE
     Dosage: UNK, DAILY
     Route: 048

REACTIONS (17)
  - Neoplasm progression [Fatal]
  - Headache [Not Recovered/Not Resolved]
  - Brain fog [Unknown]
  - Weight decreased [Unknown]
  - Off label use [Unknown]
  - Weight increased [Unknown]
  - Blood pressure abnormal [Unknown]
  - Blood pressure increased [Unknown]
  - Oral pain [Unknown]
  - Dry mouth [Unknown]
  - Stomatitis [Recovered/Resolved]
  - Mucosal inflammation [Unknown]
  - Pain in extremity [Unknown]
  - Fatigue [Unknown]
  - Condition aggravated [Not Recovered/Not Resolved]
  - Muscular weakness [Unknown]
  - Constipation [Recovered/Resolved]

NARRATIVE: CASE EVENT DATE: 20230101
